FAERS Safety Report 25755608 (Version 1)
Quarter: 2025Q3

REPORT INFORMATION
  Report Type: Report from Study
  Country: CA (occurrence: CA)
  Receive Date: 20250903
  Receipt Date: 20250903
  Transmission Date: 20251020
  Serious: Yes (Hospitalization, Other)
  Sender: GILEAD
  Company Number: CA-GILEAD-2025-0725961

PATIENT
  Sex: Male

DRUGS (3)
  1. BICTEGRAVIR\EMTRICITABINE\TENOFOVIR ALAFENAMIDE [Suspect]
     Active Substance: BICTEGRAVIR\EMTRICITABINE\TENOFOVIR ALAFENAMIDE
     Indication: HIV infection
     Dosage: 1 DOSAGE FORM, QD (AT BREAKFAST)
     Route: 048
     Dates: start: 202302
  2. IBUPROFEN [Concomitant]
     Active Substance: IBUPROFEN
     Indication: Toothache
     Dosage: 600 MG, TID (3 TABLETS (600MG) EVERY 8 HOURS, AS NEEDED)
     Dates: start: 20250821
  3. AMOXICILLIN [Concomitant]
     Active Substance: AMOXICILLIN
     Indication: Tooth infection
     Dosage: 500 MG (TAKE 1 CAPSULE (500MG) 3 TIMES A DAY, EVERY 8 HOURS FOR 10 DAYS
     Dates: start: 20250821

REACTIONS (4)
  - HIV infection [Unknown]
  - Near death experience [Recovered/Resolved]
  - Dental caries [Not Recovered/Not Resolved]
  - Tooth discolouration [Not Recovered/Not Resolved]
